FAERS Safety Report 8860237 (Version 2)
Quarter: 2012Q4

REPORT INFORMATION
  Report Type: 
  Country: JP (occurrence: JP)
  Receive Date: 20121025
  Receipt Date: 20121114
  Transmission Date: 20130627
  Serious: Yes (Other)
  Sender: FDA-Public Use
  Company Number: JP-009507513-1210JPN010585

PATIENT
  Age: 50 Year
  Sex: Female
  Weight: 30 kg

DRUGS (4)
  1. REFLEX [Suspect]
     Indication: DEPRESSION
     Dosage: 15 mg, qd
     Route: 048
     Dates: start: 20120914, end: 20120917
  2. MAGNESIUM OXIDE [Concomitant]
     Indication: CONSTIPATION
     Dosage: 750 mg, UNK
     Route: 048
     Dates: start: 20120904
  3. SENNOSIDES [Concomitant]
     Indication: CONSTIPATION
     Dosage: 12 mg, qd
     Route: 048
     Dates: start: 20120904
  4. VITAMIN B COMPLEX [Concomitant]
     Indication: MALNUTRITION
     Dosage: 75 mg, qd
     Route: 048
     Dates: start: 20120904, end: 20121015

REACTIONS (2)
  - White blood cell count decreased [Recovering/Resolving]
  - Anaemia [Recovering/Resolving]
